FAERS Safety Report 14058250 (Version 2)
Quarter: 2017Q4

REPORT INFORMATION
  Report Type: Report from Study
  Country: BR (occurrence: BR)
  Receive Date: 20171006
  Receipt Date: 20171006
  Transmission Date: 20180321
  Serious: Yes (Other)
  Sender: FDA-Public Use
  Company Number: PHHY2017BR145861

PATIENT
  Sex: Female
  Weight: 77.3 kg

DRUGS (4)
  1. NEOTIAPIM [Suspect]
     Active Substance: QUETIAPINE
     Indication: SUICIDE ATTEMPT
  2. VENLAFAXINE [Concomitant]
     Active Substance: VENLAFAXINE HYDROCHLORIDE
     Indication: PRODUCT USED FOR UNKNOWN INDICATION
     Route: 065
  3. NEOTIAPIM [Suspect]
     Active Substance: QUETIAPINE
     Indication: DEPRESSION
     Dosage: UNK UNK, QD
     Route: 048
     Dates: start: 2014
  4. ENTRESTO [Suspect]
     Active Substance: SACUBITRIL\VALSARTAN
     Indication: PRODUCT USED FOR UNKNOWN INDICATION
     Dosage: 1 DF, UNK
     Route: 065

REACTIONS (5)
  - Fatigue [Unknown]
  - Cardiomegaly [Unknown]
  - Cardiac failure [Unknown]
  - Hypoacusis [Recovered/Resolved with Sequelae]
  - Neoplasm malignant [Unknown]
